FAERS Safety Report 25327747 (Version 4)
Quarter: 2025Q4

REPORT INFORMATION
  Report Type: Report from Study
  Country: CA (occurrence: CA)
  Receive Date: 20250517
  Receipt Date: 20251201
  Transmission Date: 20260117
  Serious: Yes (Other)
  Sender: JOHNSON AND JOHNSON
  Company Number: CA-JNJFOC-20250515344

PATIENT
  Age: 51 Year
  Sex: Male

DRUGS (4)
  1. SIMPONI [Suspect]
     Active Substance: GOLIMUMAB
     Indication: Crohn^s disease
     Route: 058
     Dates: start: 20140825
  2. SIMPONI [Suspect]
     Active Substance: GOLIMUMAB
     Route: 058
     Dates: start: 20160315
  3. SIMPONI [Suspect]
     Active Substance: GOLIMUMAB
     Dosage: 200 MG SUBCUTANEOUS/WEEK 0, 2 + 4
     Route: 058
  4. SIMPONI [Suspect]
     Active Substance: GOLIMUMAB
     Route: 058

REACTIONS (3)
  - Rectal cancer [Unknown]
  - Crohn^s disease [Unknown]
  - Adverse event [Unknown]

NARRATIVE: CASE EVENT DATE: 20250501
